FAERS Safety Report 6347205-0 (Version None)
Quarter: 2009Q3

REPORT INFORMATION
  Report Type: 
  Country: None (occurrence: None)
  Receive Date: 20090910
  Receipt Date: 20090903
  Transmission Date: 20100115
  Serious: Yes (Other)
  Sender: FDA-Public Use
  Company Number: PHHY2009DE38140

PATIENT
  Sex: Female
  Weight: 59 kg

DRUGS (5)
  1. ALISKIREN ALI+ [Suspect]
     Indication: HYPERTENSION
     Dosage: UNK
     Dates: start: 20081028
  2. BETA BLOCKING AGENTS [Concomitant]
     Dosage: UNK
  3. NITRATES [Concomitant]
  4. DIURETICS [Concomitant]
  5. ANTIHYPERTENSIVES [Concomitant]

REACTIONS (1)
  - SUDDEN HEARING LOSS [None]
